FAERS Safety Report 6737595-9 (Version None)
Quarter: 2010Q2

REPORT INFORMATION
  Report Type: 
  Country: None (occurrence: None)
  Receive Date: 20100524
  Receipt Date: 20100423
  Transmission Date: 20101027
  Serious: No
  Sender: FDA-Public Use
  Company Number: US-BAYER-201014768BCC

PATIENT
  Age: 50 Year
  Sex: Female
  Weight: 58 kg

DRUGS (2)
  1. ALEVE [Suspect]
     Indication: BACK PAIN
     Dosage: APPROXIMATELY 440 TO 880 MG DAILY
     Route: 048
  2. AMBIEN CR [Concomitant]
     Route: 065

REACTIONS (4)
  - ERYTHEMA [None]
  - GLOSSODYNIA [None]
  - MUSCLE SPASMS [None]
  - URTICARIA [None]
